FAERS Safety Report 23821990 (Version 2)
Quarter: 2025Q2

REPORT INFORMATION
  Report Type: Report from Study
  Country: CA (occurrence: CA)
  Receive Date: 20240506
  Receipt Date: 20250411
  Transmission Date: 20250716
  Serious: Yes (Death, Hospitalization, Other)
  Sender: SANDOZ
  Company Number: CA-002147023-NVSC2022CA264998

PATIENT
  Age: 76 Year
  Sex: Female

DRUGS (1)
  1. ERELZI [Suspect]
     Active Substance: ETANERCEPT-SZZS
     Indication: Rheumatoid arthritis
     Dosage: 50 MG, QW
     Route: 058
     Dates: start: 20220602

REACTIONS (8)
  - Death [Fatal]
  - Infection [Unknown]
  - Pulmonary air leakage [Unknown]
  - Subcutaneous emphysema [Unknown]
  - Trigger finger [Unknown]
  - Articular calcification [Unknown]
  - Pain in extremity [Unknown]
  - Therapy interrupted [Unknown]

NARRATIVE: CASE EVENT DATE: 20241001
